FAERS Safety Report 5668671-X (Version None)
Quarter: 2008Q1

REPORT INFORMATION
  Report Type: 
  Country: None (occurrence: None)
  Receive Date: 20080312
  Receipt Date: 20080229
  Transmission Date: 20080703
  Serious: Yes (Death)
  Sender: FDA-Public Use
  Company Number: 2006VX001777

PATIENT
  Age: 81 Year
  Sex: Male

DRUGS (1)
  1. TASMAR (TOLCAPONE) [Suspect]
     Indication: PARKINSON'S DISEASE
     Dosage: 100 MG;TID;PO
     Route: 048
     Dates: start: 19990101, end: 19990101

REACTIONS (1)
  - PNEUMONIA [None]
